FAERS Safety Report 24794324 (Version 5)
Quarter: 2025Q1

REPORT INFORMATION
  Report Type: Spontaneous
  Country: CO (occurrence: CO)
  Receive Date: 20241231
  Receipt Date: 20250221
  Transmission Date: 20250409
  Serious: No
  Sender: PFIZER
  Company Number: CO-PFIZER INC-PV202400166386

PATIENT
  Age: 14 Year
  Sex: Male

DRUGS (1)
  1. GENOTROPIN [Suspect]
     Active Substance: SOMATROPIN
     Indication: Growth disorder
     Dosage: 2.4 MG, DAILY, MONDAY TO FRIDAY
     Route: 058
     Dates: start: 202406

REACTIONS (3)
  - Product packaging quantity issue [Unknown]
  - Device leakage [Unknown]
  - Device breakage [Unknown]
